FAERS Safety Report 10009367 (Version 2)
Quarter: 2014Q1

REPORT INFORMATION
  Report Type: Spontaneous
  Country: US (occurrence: US)
  Receive Date: 20140313
  Receipt Date: 20140313
  Transmission Date: 20141002
  Serious: No
  Sender: FDA-Public Use
  Company Number: US-INCYTE CORPORATION-2012IN001118

PATIENT
  Age: 57 Year
  Sex: Male
  Weight: 131.52 kg

DRUGS (2)
  1. JAKAFI [Suspect]
     Indication: MYELOFIBROSIS
     Dosage: 10 MG, BID
     Route: 048
     Dates: start: 201205
  2. HYDREA [Concomitant]
     Dosage: 1000 MG, QD

REACTIONS (2)
  - Diarrhoea [Unknown]
  - Headache [Recovered/Resolved]
